FAERS Safety Report 21743748 (Version 1)
Quarter: 2022Q4

REPORT INFORMATION
  Report Type: Spontaneous
  Country: PL (occurrence: PL)
  Receive Date: 20221217
  Receipt Date: 20221217
  Transmission Date: 20230113
  Serious: Yes (Life-Threatening, Hospitalization, Other)
  Sender: FDA-Public Use
  Company Number: PL-URPL-S1908/2018

PATIENT
  Age: 64 Year
  Sex: Female
  Weight: 80 kg

DRUGS (3)
  1. ACETAMINOPHEN [Suspect]
     Active Substance: ACETAMINOPHEN
     Indication: Atrial fibrillation
     Dosage: 3 GRAM
     Route: 048
     Dates: start: 201811, end: 20181206
  2. OMEPRAZOLE SODIUM [Suspect]
     Active Substance: OMEPRAZOLE SODIUM
     Indication: Atrial fibrillation
     Dosage: 40 MILLIGRAM
     Route: 048
     Dates: start: 201811, end: 20181206
  3. WARFARIN [Suspect]
     Active Substance: WARFARIN
     Indication: Atrial fibrillation
     Dosage: UNK(DOSAGE ACCORDING TO INR=11)
     Route: 048
     Dates: start: 2016, end: 20181206

REACTIONS (1)
  - Gastrointestinal haemorrhage [Recovering/Resolving]

NARRATIVE: CASE EVENT DATE: 20181206
